FAERS Safety Report 10401368 (Version 2)
Quarter: 2014Q4

REPORT INFORMATION
  Report Type: Spontaneous
  Country: US (occurrence: US)
  Receive Date: 20140822
  Receipt Date: 20141001
  Transmission Date: 20150528
  Serious: Yes (Hospitalization)
  Sender: FDA-Public Use
  Company Number: 2014SP004841

PATIENT
  Age: 62 Year
  Sex: Male
  Weight: 97.5 kg

DRUGS (16)
  1. FLUDARABINE [Suspect]
     Active Substance: FLUDARABINE PHOSPHATE
     Indication: ACUTE LYMPHOCYTIC LEUKAEMIA
     Route: 042
     Dates: start: 20140708, end: 20140711
  2. PROTONIX [Concomitant]
     Active Substance: PANTOPRAZOLE SODIUM
     Indication: GASTROOESOPHAGEAL REFLUX DISEASE
     Dates: start: 20140515
  3. VALTREX [Concomitant]
     Active Substance: VALACYCLOVIR HYDROCHLORIDE
     Indication: INFECTION
     Dates: start: 20140508
  4. METOPROLOL [Concomitant]
     Active Substance: METOPROLOL
     Indication: ATRIAL FIBRILLATION
     Dates: start: 20140530
  5. POTASSIUM CHLORIDE. [Concomitant]
     Active Substance: POTASSIUM CHLORIDE
     Indication: HYPOKALAEMIA
     Dates: start: 20140530
  6. CANCIDAS [Concomitant]
     Active Substance: CASPOFUNGIN ACETATE
     Indication: INFECTION
     Dates: start: 20140618
  7. AMIODARONE [Concomitant]
     Active Substance: AMIODARONE
     Indication: ATRIAL FIBRILLATION
     Dates: start: 20140618
  8. VANTIN /00139502/ [Concomitant]
     Indication: INFECTION
     Dates: start: 20140610
  9. ERTAPENEM [Concomitant]
     Active Substance: ERTAPENEM
     Indication: INFECTION
     Dates: start: 20140627, end: 20140703
  10. CYTARABINE. [Suspect]
     Active Substance: CYTARABINE
     Indication: ACUTE LYMPHOCYTIC LEUKAEMIA
     Route: 042
     Dates: start: 20140806, end: 20140808
  11. PEGFILGRASTIM [Suspect]
     Active Substance: PEGFILGRASTIM
     Indication: ACUTE LYMPHOCYTIC LEUKAEMIA
     Route: 058
     Dates: start: 20140811, end: 20140811
  12. CIPROFLOXACIN. [Concomitant]
     Active Substance: CIPROFLOXACIN
     Indication: INFECTION PROPHYLAXIS
     Dates: start: 20140806
  13. CRESTOR [Concomitant]
     Active Substance: ROSUVASTATIN CALCIUM
     Indication: LIPIDS DECREASED
     Dates: start: 20140527
  14. FLUDARABINE [Suspect]
     Active Substance: FLUDARABINE PHOSPHATE
     Indication: ACUTE LYMPHOCYTIC LEUKAEMIA
     Route: 042
     Dates: start: 20140806, end: 20140808
  15. MAGNESIUM OXIDE. [Concomitant]
     Active Substance: MAGNESIUM OXIDE
     Indication: BLOOD MAGNESIUM DECREASED
     Dates: start: 20140804
  16. PEGFILGRASTIM [Suspect]
     Active Substance: PEGFILGRASTIM
     Indication: ACUTE LYMPHOCYTIC LEUKAEMIA
     Route: 058
     Dates: start: 20140711, end: 20140711

REACTIONS (6)
  - Urinary tract infection [Recovered/Resolved]
  - Nausea [Unknown]
  - Thrombocytopenia [Unknown]
  - Atrial fibrillation [None]
  - Abdominal pain [Unknown]
  - Febrile neutropenia [Recovered/Resolved]

NARRATIVE: CASE EVENT DATE: 20140716
